FAERS Safety Report 6971726-0 (Version None)
Quarter: 2010Q3

REPORT INFORMATION
  Report Type: 
  Country: None (occurrence: None)
  Receive Date: 20100903
  Receipt Date: 20100825
  Transmission Date: 20110219
  Serious: Yes (Hospitalization)
  Sender: FDA-Public Use
  Company Number: 014714

PATIENT
  Sex: Female
  Weight: 60 kg

DRUGS (1)
  1. KEPPRA [Suspect]
     Indication: EPILEPSY
     Dosage: 500 MG BID ORAL
     Route: 048
     Dates: start: 20061115, end: 20100719

REACTIONS (1)
  - THROMBOCYTOPENIA [None]
